FAERS Safety Report 10077211 (Version 2)
Quarter: 2014Q2

REPORT INFORMATION
  Report Type: Spontaneous
  Country: US (occurrence: US)
  Receive Date: 20140414
  Receipt Date: 20140414
  Transmission Date: 20141212
  Serious: No
  Sender: FDA-Public Use
  Company Number: US-BANPHARM-20130915

PATIENT
  Age: 71 Year
  Sex: Female
  Weight: 53.52 kg

DRUGS (5)
  1. ALEVE LIQUID GELS 220MG [Suspect]
     Dosage: 2 DF, QD,
     Route: 048
     Dates: start: 2004
  2. ESTRADIOL [Concomitant]
  3. CALCIUM [Concomitant]
  4. VITAMIN D [Concomitant]
  5. VITAMIN B [Concomitant]

REACTIONS (2)
  - Paraesthesia oral [Recovered/Resolved]
  - Product physical issue [Not Recovered/Not Resolved]
